FAERS Safety Report 9827021 (Version 1)
Quarter: 2013Q4

REPORT INFORMATION
  Report Type: Spontaneous
  Country: US (occurrence: None)
  Receive Date: 20131112
  Receipt Date: 20131112
  Transmission Date: 20140711
  Serious: No
  Sender: FDA-Public Use
  Company Number: US-013018

PATIENT
  Age: 60 Year
  Sex: Female
  Weight: 60.33 kg

DRUGS (5)
  1. PICO-SALAX [Suspect]
     Indication: BOWEL PREPARATION
     Dates: start: 20130911
  2. RAMIPRIL [Concomitant]
  3. LANTUS [Concomitant]
  4. ZYRTEC [Concomitant]
  5. ASPIRIN [Concomitant]

REACTIONS (3)
  - Blood glucose decreased [None]
  - Abdominal discomfort [None]
  - Drug ineffective [None]
